FAERS Safety Report 7349797-1 (Version None)
Quarter: 2011Q1

REPORT INFORMATION
  Report Type: 
  Country: None (occurrence: None)
  Receive Date: 20110314
  Receipt Date: 20110310
  Transmission Date: 20110831
  Serious: Yes (Hospitalization, Other)
  Sender: FDA-Public Use
  Company Number: US-ROCHE-428836

PATIENT
  Sex: Female
  Weight: 72.6 kg

DRUGS (30)
  1. DOXYCYCLINE [Concomitant]
     Indication: ACNE
     Route: 048
  2. AUGMENTIN '125' [Concomitant]
     Indication: UPPER RESPIRATORY TRACT INFECTION
     Dates: start: 20021009
  3. ROBITUSSIN [Concomitant]
     Indication: BRONCHITIS
     Dates: start: 20041113
  4. KLONOPIN [Concomitant]
     Dates: start: 20051126
  5. CIPRO [Concomitant]
     Route: 048
     Dates: start: 20050112
  6. SURFAK [Concomitant]
     Indication: CONSTIPATION
     Route: 048
     Dates: start: 20011206
  7. TRI-LEVLEN 28 [Concomitant]
     Route: 048
     Dates: start: 20010320
  8. FLONASE [Concomitant]
     Dates: start: 20031125
  9. PHENAZOPYRIDINE HCL TAB [Concomitant]
     Indication: PYELONEPHRITIS
     Dates: start: 20030703
  10. MOTRIN [Concomitant]
     Indication: PYELONEPHRITIS
     Dates: start: 20030703
  11. DECONAMINE SR [Concomitant]
     Indication: UPPER RESPIRATORY TRACT INFECTION
     Dates: start: 20021009
  12. SUDAFED 12 HOUR [Concomitant]
     Indication: BRONCHITIS
     Dates: start: 20041113
  13. ACCUTANE [Suspect]
     Route: 048
     Dates: start: 20020110, end: 20020403
  14. THROAT LOZENGES [Concomitant]
     Indication: PHARYNGITIS
     Dates: start: 20020201
  15. ALLEGRA [Concomitant]
     Dates: start: 20031125
  16. LEVOFLOXACIN [Concomitant]
     Indication: PYELONEPHRITIS
     Dates: start: 20030703
  17. EFFEXOR [Concomitant]
     Dates: start: 20031126
  18. AZATHIOPRINE [Suspect]
     Indication: CROHN'S DISEASE
     Route: 065
     Dates: start: 20041227, end: 20050115
  19. ALESSE [Concomitant]
     Dates: start: 20031126
  20. PAXIL [Concomitant]
     Indication: DEPRESSION
  21. BACTROBAN [Concomitant]
     Dosage: DOSAGE REGIMEN REPORTED AS 2% GM.
     Route: 061
     Dates: start: 20011120
  22. ACCUTANE [Suspect]
     Route: 048
     Dates: start: 20011010, end: 20011226
  23. HUMIBID [Concomitant]
     Indication: UPPER RESPIRATORY TRACT INFECTION
     Dates: start: 20021009
  24. ZITHROMAX [Concomitant]
     Indication: BRONCHITIS
     Dates: start: 20041113
  25. TYLENOL [Concomitant]
     Indication: BRONCHITIS
     Dosage: DOSING REGIMEN EVERY 4-6 HRS PRN.
     Route: 048
     Dates: start: 20041113
  26. VICODIN [Concomitant]
     Indication: PYELONEPHRITIS
     Dates: start: 20030703
  27. ROWASA [Concomitant]
  28. ERYTHROMYCIN [Concomitant]
     Route: 047
     Dates: start: 20050112
  29. KENALOG [Concomitant]
     Dosage: DOSAGE REGIMEN TID PRN.
     Route: 061
     Dates: start: 20020109
  30. LOMOTIL [Concomitant]
     Route: 048
     Dates: start: 20011226

REACTIONS (13)
  - UVEITIS [None]
  - PAIN IN EXTREMITY [None]
  - DEPRESSION [None]
  - RENAL FAILURE ACUTE [None]
  - TUBULOINTERSTITIAL NEPHRITIS [None]
  - MALIGNANT MELANOMA [None]
  - PYELONEPHRITIS [None]
  - GENERALISED ANXIETY DISORDER [None]
  - MUSCULAR WEAKNESS [None]
  - INFLAMMATORY BOWEL DISEASE [None]
  - CROHN'S DISEASE [None]
  - HEADACHE [None]
  - MYALGIA [None]
